FAERS Safety Report 22958045 (Version 2)
Quarter: 2024Q3

REPORT INFORMATION
  Report Type: Spontaneous
  Country: US (occurrence: US)
  Receive Date: 20230919
  Receipt Date: 20240927
  Transmission Date: 20241017
  Serious: No
  Sender: LEO PHARM
  Company Number: US-LEO Pharma-362834

PATIENT
  Age: 56 Year
  Sex: Female

DRUGS (2)
  1. ADBRY [Suspect]
     Active Substance: TRALOKINUMAB-LDRM
     Indication: Product used for unknown indication
     Dosage: 600 MG FOR THE INITIAL DOSE UNDER THE SKIN
     Route: 058
     Dates: start: 20230902
  2. ADBRY [Suspect]
     Active Substance: TRALOKINUMAB-LDRM
     Indication: Product used for unknown indication
     Dosage: 300 MG EVERY OTHER WEEK THEREAFTER

REACTIONS (1)
  - Therapeutic nerve ablation [Unknown]
